FAERS Safety Report 16131920 (Version 1)
Quarter: 2019Q1

REPORT INFORMATION
  Report Type: Other
  Country: ES (occurrence: ES)
  Receive Date: 20190329
  Receipt Date: 20190329
  Transmission Date: 20190418
  Serious: Yes (Other)
  Sender: FDA-Public Use
  Company Number: ES-DENTSPLY-2019SCDP000180

PATIENT
  Age: 28 Year
  Sex: Female
  Weight: 72 kg

DRUGS (1)
  1. PRILOCAINE AND LIDOCAINE [Suspect]
     Active Substance: LIDOCAINE\PRILOCAINE
     Indication: ANAESTHESIA
     Dosage: UNK
     Route: 061
     Dates: start: 20190306, end: 20190306

REACTIONS (1)
  - Application site burn [None]

NARRATIVE: CASE EVENT DATE: 20190306
